FAERS Safety Report 22368698 (Version 1)
Quarter: 2023Q2

REPORT INFORMATION
  Report Type: Spontaneous
  Country: US (occurrence: US)
  Receive Date: 20230525
  Receipt Date: 20230525
  Transmission Date: 20230722
  Serious: No
  Sender: FDA-Public Use
  Company Number: US-PFIZER INC-202300199964

PATIENT
  Sex: Female

DRUGS (2)
  1. DAPTOMYCIN [Suspect]
     Active Substance: DAPTOMYCIN
     Dosage: 500 MG, ALTERNATE DAY (6 WEEKS EVERY OTHER DAY VIA CENTRAL LINE)
  2. MEROPENEM [Concomitant]
     Active Substance: MEROPENEM
     Dosage: EVERY DAY

REACTIONS (4)
  - Heart rate increased [Unknown]
  - Diarrhoea [Unknown]
  - Blood creatinine increased [Unknown]
  - Incorrect route of product administration [Unknown]
